FAERS Safety Report 5898022-7 (Version None)
Quarter: 2008Q3

REPORT INFORMATION
  Report Type: 
  Country: None (occurrence: None)
  Receive Date: 20080924
  Receipt Date: 20080924
  Transmission Date: 20090109
  Serious: Yes (Hospitalization)
  Sender: FDA-Public Use
  Company Number: None

PATIENT
  Age: 70 Year
  Sex: Male
  Weight: 91.4 kg

DRUGS (2)
  1. DIGOXIN [Suspect]
     Indication: CARDIAC FAILURE CONGESTIVE
     Dosage: 0.25 MG EVERYDAY PO
     Route: 048
     Dates: start: 20071107, end: 20080920
  2. DILTIAZEM HCL [Suspect]
     Indication: HYPERTENSION
     Dosage: 240 MG EVERY DAY PO
     Route: 048
     Dates: start: 20071107, end: 20080920

REACTIONS (1)
  - ATRIOVENTRICULAR BLOCK COMPLETE [None]
